FAERS Safety Report 22775753 (Version 2)
Quarter: 2023Q4

REPORT INFORMATION
  Report Type: Report from Study
  Country: BE (occurrence: BE)
  Receive Date: 20230802
  Receipt Date: 20231009
  Transmission Date: 20240110
  Serious: Yes (Hospitalization)
  Sender: FDA-Public Use
  Company Number: BE-SA-SAC20230729000004

PATIENT
  Age: 59 Year
  Sex: Male
  Weight: 99 kg

DRUGS (14)
  1. ISATUXIMAB [Suspect]
     Active Substance: ISATUXIMAB
     Indication: Plasma cell myeloma
     Dosage: 930 MG, QW
     Route: 042
     Dates: start: 20230620, end: 20230620
  2. ISATUXIMAB [Suspect]
     Active Substance: ISATUXIMAB
     Dosage: 930 MG, QW
     Route: 042
     Dates: start: 20230717, end: 20230717
  3. CARFILZOMIB [Suspect]
     Active Substance: CARFILZOMIB
     Indication: Plasma cell myeloma
     Dosage: 119.28 MG, D1, D8, D15 OF CYCLE
     Route: 042
     Dates: start: 20230620, end: 20230620
  4. CARFILZOMIB [Suspect]
     Active Substance: CARFILZOMIB
     Dosage: 119.28 MG, D1, D8, D15 OF CYCLE
     Route: 042
     Dates: start: 20230725, end: 20230725
  5. LENALIDOMIDE [Suspect]
     Active Substance: LENALIDOMIDE
     Indication: Plasma cell myeloma
     Dosage: 25 MG, D 1, D21
     Route: 048
     Dates: start: 20230620, end: 20230620
  6. LENALIDOMIDE [Suspect]
     Active Substance: LENALIDOMIDE
     Dosage: 25 MG, D 1, D21
     Route: 048
     Dates: start: 20230725, end: 20230725
  7. DEXAMETHASONE [Suspect]
     Active Substance: DEXAMETHASONE
     Indication: Plasma cell myeloma
     Dosage: 40 MG, D 1, D8, D15 OF CYCLE
     Route: 048
     Dates: start: 20230620, end: 20230620
  8. DEXAMETHASONE [Suspect]
     Active Substance: DEXAMETHASONE
     Dosage: 40 MG,  D 1, D8, D15 OF CYCLE
     Route: 048
     Dates: start: 20230725, end: 20230725
  9. AMOXICILLIN [Concomitant]
     Active Substance: AMOXICILLIN
     Dosage: UNK
     Route: 065
  10. INNOHEP [Concomitant]
     Active Substance: TINZAPARIN SODIUM
     Dosage: UNK
     Route: 065
  11. ACYCLOVIR [Concomitant]
     Active Substance: ACYCLOVIR
     Dosage: UNK
     Route: 065
  12. TRAMADOL [Concomitant]
     Active Substance: TRAMADOL\TRAMADOL HYDROCHLORIDE
     Dosage: UNK
     Route: 065
  13. MAGNECAPS [Concomitant]
     Dosage: UNK
     Route: 065
  14. REDOMAX [Concomitant]
     Dosage: UNK
     Route: 065

REACTIONS (1)
  - Rash maculo-papular [Recovered/Resolved]

NARRATIVE: CASE EVENT DATE: 20230726
